FAERS Safety Report 25109390 (Version 1)
Quarter: 2025Q1

REPORT INFORMATION
  Report Type: Spontaneous
  Country: US (occurrence: US)
  Receive Date: 20250323
  Receipt Date: 20250323
  Transmission Date: 20250408
  Serious: No
  Sender: GLAXOSMITHKLINE
  Company Number: US-GSK-US2025031067

PATIENT
  Age: 64 Year

DRUGS (3)
  1. TRELEGY ELLIPTA [Suspect]
     Active Substance: FLUTICASONE FUROATE\UMECLIDINIUM BROMIDE\VILANTEROL TRIFENATATE
     Indication: Chronic obstructive pulmonary disease
     Dosage: 1 PUFF(S), QD, 200-62.5-25MCG
     Dates: start: 2019
  2. TRELEGY ELLIPTA [Suspect]
     Active Substance: FLUTICASONE FUROATE\UMECLIDINIUM BROMIDE\VILANTEROL TRIFENATATE
     Indication: Asthma
  3. WIXELA INHUB [Concomitant]
     Active Substance: FLUTICASONE PROPIONATE\SALMETEROL XINAFOATE
     Indication: Asthma-chronic obstructive pulmonary disease overlap syndrome
     Dosage: 2 PUFF(S), QD, 250/50MCG
     Route: 055
     Dates: start: 20250303, end: 20250308

REACTIONS (4)
  - Dyspnoea [Unknown]
  - Seasonal allergy [Not Recovered/Not Resolved]
  - COVID-19 [Unknown]
  - Sinus disorder [Unknown]

NARRATIVE: CASE EVENT DATE: 20240626
